FAERS Safety Report 4594608-0 (Version None)
Quarter: 2005Q1

REPORT INFORMATION
  Report Type: 
  Country: None (occurrence: None)
  Receive Date: 20050301
  Receipt Date: 20041101
  Transmission Date: 20050727
  Serious: No
  Sender: FDA-Public Use
  Company Number: US-BRISTOL-MYERS SQUIBB COMPANY-12752010

PATIENT
  Age: 43 Year
  Sex: Male
  Weight: 39 kg

DRUGS (3)
  1. ERBITUX [Suspect]
     Indication: COLORECTAL CANCER METASTATIC
     Dosage: LOADING DOSE
     Route: 042
     Dates: start: 20041025, end: 20041025
  2. OXYCONTIN [Concomitant]
  3. MEGACE [Concomitant]

REACTIONS (1)
  - DERMATITIS ACNEIFORM [None]
